FAERS Safety Report 13410009 (Version 3)
Quarter: 2017Q2

REPORT INFORMATION
  Report Type: Report from Study
  Country: NL (occurrence: NL)
  Receive Date: 20170406
  Receipt Date: 20170503
  Transmission Date: 20170830
  Serious: No
  Sender: FDA-Public Use
  Company Number: NL-BAXALTA-2017BLT002734

PATIENT
  Sex: Male

DRUGS (2)
  1. HYQVIA [Suspect]
     Active Substance: HUMAN IMMUNOGLOBULIN G\HYALURONIDASE RECOMBINANT HUMAN
     Indication: OFF LABEL USE
     Dosage: UNK
     Route: 065
     Dates: start: 20170406
  2. HYQVIA [Suspect]
     Active Substance: HUMAN IMMUNOGLOBULIN G\HYALURONIDASE RECOMBINANT HUMAN
     Indication: MULTIFOCAL MOTOR NEUROPATHY
     Route: 065

REACTIONS (1)
  - Syncope [Unknown]
